FAERS Safety Report 9446152 (Version 1)
Quarter: 2013Q3

REPORT INFORMATION
  Report Type: Spontaneous
  Country: FR (occurrence: FR)
  Receive Date: 20130807
  Receipt Date: 20130807
  Transmission Date: 20140515
  Serious: Yes (Hospitalization, Other)
  Sender: FDA-Public Use
  Company Number: FR-PFIZER INC-2013088873

PATIENT
  Age: 69 Year
  Sex: Female

DRUGS (1)
  1. AROMASINE [Suspect]
     Indication: BREAST CANCER
     Dosage: 7.5 MG, 1X/DAY

REACTIONS (18)
  - Blood pressure increased [Unknown]
  - Hepatic fibrosis [Unknown]
  - Feeling of despair [Unknown]
  - Laboratory test abnormal [Unknown]
  - Blood cholesterol increased [Unknown]
  - Hot flush [Unknown]
  - Fatigue [Unknown]
  - Pain [Unknown]
  - Somnolence [Unknown]
  - General physical health deterioration [Unknown]
  - Liver function test abnormal [Unknown]
  - Arthralgia [Unknown]
  - Myalgia [Unknown]
  - Bone pain [Unknown]
  - Swelling [Unknown]
  - Feeling abnormal [Unknown]
  - White blood cell count increased [Unknown]
  - Blood albumin increased [Unknown]
